FAERS Safety Report 4834677-3 (Version None)
Quarter: 2005Q4

REPORT INFORMATION
  Report Type: 
  Country: None (occurrence: None)
  Receive Date: 20051122
  Receipt Date: 20051114
  Transmission Date: 20060501
  Serious: Yes (Death)
  Sender: FDA-Public Use
  Company Number: FR-GLAXOSMITHKLINE-B0400672A

PATIENT
  Sex: Male

DRUGS (4)
  1. WELLVONE [Suspect]
     Indication: PNEUMOCYSTIS JIROVECI PNEUMONIA
     Dosage: 7.5ML TWICE PER DAY
     Route: 048
     Dates: start: 20050901, end: 20051101
  2. PENTAMIDINE [Suspect]
     Indication: PNEUMOCYSTIS JIROVECI PNEUMONIA
     Route: 065
     Dates: start: 20051101, end: 20051101
  3. MALOCIDE [Concomitant]
     Indication: PNEUMOCYSTIS JIROVECI PNEUMONIA
     Route: 048
     Dates: start: 20050901, end: 20051101
  4. HIV TRIPLE THERAPY [Concomitant]
     Route: 065

REACTIONS (5)
  - CARDIOGENIC SHOCK [None]
  - DRUG INEFFECTIVE [None]
  - MALABSORPTION [None]
  - PNEUMOCYSTIS JIROVECI PNEUMONIA [None]
  - TREATMENT NONCOMPLIANCE [None]
